FAERS Safety Report 15007308 (Version 1)
Quarter: 2018Q2

REPORT INFORMATION
  Report Type: Spontaneous
  Country: GB (occurrence: GB)
  Receive Date: 20180613
  Receipt Date: 20180613
  Transmission Date: 20180711
  Serious: Yes (Hospitalization, Other)
  Sender: FDA-Public Use
  Company Number: GB-SA-2018SA092958

PATIENT
  Age: 51 Year
  Sex: Female
  Weight: 73.6 kg

DRUGS (2)
  1. CEFALORIDINE [Concomitant]
     Active Substance: CEPHALORIDINE
     Indication: CONTRACEPTION
     Dosage: 75 UG,UNK
     Route: 048
     Dates: start: 2013
  2. CERDELGA [Suspect]
     Active Substance: ELIGLUSTAT
     Indication: GAUCHER^S DISEASE TYPE I
     Dosage: 84 MG,BID
     Route: 048
     Dates: start: 20180318

REACTIONS (6)
  - Appendicitis [Recovering/Resolving]
  - Unevaluable event [Unknown]
  - Malaise [Recovering/Resolving]
  - Abdominal pain upper [Recovering/Resolving]
  - Intentional underdose [Unknown]
  - Abdominal pain [Recovered/Resolved]

NARRATIVE: CASE EVENT DATE: 20180318
